FAERS Safety Report 7560012-6 (Version None)
Quarter: 2011Q2

REPORT INFORMATION
  Report Type: 
  Country: None (occurrence: None)
  Receive Date: 20110621
  Receipt Date: 20110610
  Transmission Date: 20111010
  Serious: Yes (Other)
  Sender: FDA-Public Use
  Company Number: PHHY2010BR86035

PATIENT
  Sex: Female

DRUGS (1)
  1. ZELMAC [Suspect]
     Dosage: 6 MG
     Route: 048

REACTIONS (3)
  - HYPOAESTHESIA ORAL [None]
  - FEELING ABNORMAL [None]
  - BLOOD PRESSURE DECREASED [None]
